FAERS Safety Report 8471104-1 (Version None)
Quarter: 2012Q2

REPORT INFORMATION
  Report Type: 
  Country: None (occurrence: None)
  Receive Date: 20120627
  Receipt Date: 20120620
  Transmission Date: 20120825
  Serious: Yes (Other)
  Sender: FDA-Public Use
  Company Number: US-PFIZER INC-2012148735

PATIENT
  Age: 28 Year
  Sex: Female
  Weight: 136 kg

DRUGS (3)
  1. ZOLOFT [Suspect]
     Dosage: 25 MG
  2. ZOLOFT [Suspect]
     Indication: DEPRESSION
     Dosage: 25 MG
     Route: 048
     Dates: start: 20060101
  3. SERTRALINE HYDROCHLORIDE [Suspect]
     Indication: DEPRESSION
     Dosage: 25 MG

REACTIONS (7)
  - MALAISE [None]
  - EMOTIONAL DISORDER [None]
  - FEELING ABNORMAL [None]
  - PRE-ECLAMPSIA [None]
  - HYPOTHALAMO-PITUITARY DISORDER [None]
  - DRUG INEFFECTIVE [None]
  - TREMOR [None]
